FAERS Safety Report 11872165 (Version 1)
Quarter: 2015Q4

REPORT INFORMATION
  Report Type: Spontaneous
  Country: US (occurrence: US)
  Receive Date: 20151228
  Receipt Date: 20151228
  Transmission Date: 20160305
  Serious: Yes (Other)
  Sender: FDA-Public Use
  Company Number: US-PFIZER INC-2015463609

PATIENT
  Sex: Male

DRUGS (1)
  1. GABAPENTIN. [Suspect]
     Active Substance: GABAPENTIN
     Indication: PAIN

REACTIONS (5)
  - Somnolence [Unknown]
  - Loss of consciousness [Unknown]
  - Feeling abnormal [Unknown]
  - Drug ineffective [Unknown]
  - Product use issue [Unknown]
